FAERS Safety Report 9168715 (Version 1)
Quarter: 2013Q1

REPORT INFORMATION
  Report Type: Report from Study
  Country: MX (occurrence: MX)
  Receive Date: 20130318
  Receipt Date: 20130318
  Transmission Date: 20140127
  Serious: Yes (Hospitalization)
  Sender: FDA-Public Use
  Company Number: MX-ROCHE-1202886

PATIENT
  Sex: Female

DRUGS (1)
  1. XELODA [Suspect]
     Indication: GASTRIC CANCER
     Route: 065

REACTIONS (2)
  - Disease progression [Unknown]
  - Pleurisy [Unknown]
